FAERS Safety Report 5176324-X (Version None)
Quarter: 2006Q4

REPORT INFORMATION
  Report Type: 
  Country: None (occurrence: None)
  Receive Date: 20061207
  Receipt Date: 20061121
  Transmission Date: 20070319
  Serious: Yes (Hospitalization)
  Sender: FDA-Public Use
  Company Number: 2006002222

PATIENT
  Sex: Male

DRUGS (2)
  1. ERLOTINIB (ERLOTINIB HCL) [Suspect]
     Indication: NON-SMALL CELL LUNG CANCER
     Dosage: 150MG (QD); ORAL
     Route: 048
  2. DECADRON [Concomitant]

REACTIONS (3)
  - BLOOD GLUCOSE INCREASED [None]
  - MUSCLE TWITCHING [None]
  - SUBDURAL HYGROMA [None]
